FAERS Safety Report 8987158 (Version 2)
Quarter: 2013Q1

REPORT INFORMATION
  Report Type: Spontaneous
  Country: US (occurrence: US)
  Receive Date: 20121227
  Receipt Date: 20130115
  Transmission Date: 20140127
  Serious: Yes (Other)
  Sender: FDA-Public Use
  Company Number: US-BAYER-2012-135248

PATIENT
  Age: 29 Year
  Sex: Female
  Weight: 51.7 kg

DRUGS (5)
  1. YASMIN [Suspect]
     Indication: CONTRACEPTION
     Dosage: UNK
     Dates: start: 2004, end: 201208
  2. PRENATAL [Concomitant]
     Dosage: ONE DAILY
     Route: 048
  3. ALLERGY SHOT [Concomitant]
     Indication: MULTIPLE ALLERGIES
     Dosage: EVERY 7 - 14 DAYS
     Dates: start: 2004, end: 2006
  4. ALLERGY SHOT [Concomitant]
     Indication: MULTIPLE ALLERGIES
     Dosage: UNK
     Dates: start: 2009
  5. ALLERGY SHOT [Concomitant]
     Indication: MULTIPLE ALLERGIES
     Dosage: EVERY 7 - 14 DAYS

REACTIONS (3)
  - Deep vein thrombosis [None]
  - Pain in extremity [None]
  - Local swelling [None]
